FAERS Safety Report 10892298 (Version 1)
Quarter: 2015Q1

REPORT INFORMATION
  Report Type: Spontaneous
  Country: GB (occurrence: GB)
  Receive Date: 20150306
  Receipt Date: 20150306
  Transmission Date: 20150721
  Serious: Yes (Other)
  Sender: FDA-Public Use
  Company Number: GB-APOTEX-2015AP007118

PATIENT
  Sex: Male

DRUGS (7)
  1. PREDNISOLONE. [Suspect]
     Active Substance: PREDNISOLONE
     Dosage: 15 MG, QD
     Route: 048
  2. MYCOPHENOLATE [Suspect]
     Active Substance: MYCOPHENOLIC ACID
     Indication: KERATITIS
     Dosage: 1 G, BID
     Route: 048
     Dates: start: 201201
  3. INFLIXIMAB [Concomitant]
     Active Substance: INFLIXIMAB
     Indication: KERATITIS
     Dosage: UNK
     Route: 042
  4. MYCOPHENOLATE [Suspect]
     Active Substance: MYCOPHENOLIC ACID
     Dosage: 1.25 G, BID
     Route: 048
  5. PREDNISOLONE. [Suspect]
     Active Substance: PREDNISOLONE
     Indication: ULCERATIVE KERATITIS
     Dosage: 75 MG, QD
     Route: 048
     Dates: start: 201201
  6. PREDNISOLONE. [Suspect]
     Active Substance: PREDNISOLONE
     Dosage: 75 MG, QD
     Route: 048
  7. CICLOSPORIN [Suspect]
     Active Substance: CYCLOSPORINE
     Indication: KERATITIS
     Dosage: 75 MG, BID
     Route: 048

REACTIONS (2)
  - Condition aggravated [Recovered/Resolved]
  - Anal abscess [Unknown]
